FAERS Safety Report 8790491 (Version 2)
Quarter: 2013Q1

REPORT INFORMATION
  Report Type: Spontaneous
  Country: GB (occurrence: None)
  Receive Date: 20120904
  Receipt Date: 20130131
  Transmission Date: 20140127
  Serious: Yes (Other)
  Sender: FDA-Public Use
  Company Number: WIL-005-12-GB

PATIENT
  Age: 55 Year
  Sex: Female

DRUGS (10)
  1. WILATE [Suspect]
     Indication: VON WILLEBRAND^S DISEASE
     Dosage: (1X 1/TOTAL)
     Dates: start: 20120730, end: 20120730
  2. ATORVASTATIN [Concomitant]
  3. BENDROFLUMETHIAZIDE [Concomitant]
  4. CETIRIZINE [Concomitant]
  5. IPRATROPIUM [Concomitant]
  6. LANSOPRAZOLE [Concomitant]
  7. MONTELUKAST [Concomitant]
  8. RAMIPRIL [Suspect]
  9. TRAMADOL [Concomitant]
  10. VITAMIN B [Concomitant]

REACTIONS (5)
  - Chest pain [None]
  - Flushing [None]
  - Dyspnoea [None]
  - Nausea [None]
  - Infusion related reaction [None]
